FAERS Safety Report 24757999 (Version 5)
Quarter: 2025Q1

REPORT INFORMATION
  Report Type: Spontaneous
  Country: US (occurrence: US)
  Receive Date: 20241220
  Receipt Date: 20250328
  Transmission Date: 20250409
  Serious: Yes (Hospitalization)
  Sender: BRISTOL-MYERS SQUIBB COMPANY
  Company Number: US-BRISTOL-MYERS SQUIBB COMPANY-2024-197673

PATIENT
  Age: 72 Year
  Sex: Male

DRUGS (4)
  1. OPDIVO [Suspect]
     Active Substance: NIVOLUMAB
     Indication: Mesothelioma
     Dosage: CYCLE ONE
     Dates: start: 20241119
  2. OPDIVO [Suspect]
     Active Substance: NIVOLUMAB
     Dosage: CYCLE TWO
     Dates: start: 20241210
  3. YERVOY [Suspect]
     Active Substance: IPILIMUMAB
     Indication: Mesothelioma
     Dosage: CYCLE ONE?STRENGTH: 50MG/10ML (5MG/ML)
     Dates: start: 20241119
  4. YERVOY [Suspect]
     Active Substance: IPILIMUMAB
     Dosage: CYCLE TWO
     Dates: start: 20241210

REACTIONS (2)
  - Chills [Recovered/Resolved]
  - Off label use [Unknown]

NARRATIVE: CASE EVENT DATE: 20241210
